FAERS Safety Report 19754162 (Version 1)
Quarter: 2021Q3

REPORT INFORMATION
  Report Type: Spontaneous
  Country: US (occurrence: US)
  Receive Date: 20210824
  Receipt Date: 20210824
  Transmission Date: 20211014
  Serious: Yes (Hospitalization)
  Sender: FDA-Public Use
  Company Number: None

PATIENT
  Age: 62 Year
  Sex: Male

DRUGS (1)
  1. STIVARGA [Suspect]
     Active Substance: REGORAFENIB
     Indication: RECTOSIGMOID CANCER
     Route: 048
     Dates: start: 20210614

REACTIONS (4)
  - Rash [None]
  - Oral mucosal eruption [None]
  - Pyrexia [None]
  - Arthritis [None]

NARRATIVE: CASE EVENT DATE: 202106
